FAERS Safety Report 4805342-3 (Version None)
Quarter: 2005Q4

REPORT INFORMATION
  Report Type: 
  Country: None (occurrence: None)
  Receive Date: 20051020
  Receipt Date: 20051011
  Transmission Date: 20060501
  Serious: Yes (Other)
  Sender: FDA-Public Use
  Company Number: US-MERCK-0510USA06665

PATIENT
  Age: 49 Year
  Sex: Male
  Weight: 105 kg

DRUGS (3)
  1. VIOXX [Suspect]
     Indication: BACK PAIN
     Route: 048
     Dates: start: 20001101, end: 20020501
  2. ASPIRIN [Concomitant]
     Route: 065
  3. ZOCOR [Concomitant]
     Route: 065

REACTIONS (3)
  - EMOTIONAL DISORDER [None]
  - MENTAL DISORDER [None]
  - MYOCARDIAL INFARCTION [None]
